FAERS Safety Report 4273172-X (Version None)
Quarter: 2004Q1

REPORT INFORMATION
  Report Type: 
  Country: None (occurrence: None)
  Receive Date: 20040116
  Receipt Date: 20040112
  Transmission Date: 20041129
  Serious: Yes (Other)
  Sender: FDA-Public Use
  Company Number: WAES 0401USA00785

PATIENT
  Age: 7 Year
  Sex: Female

DRUGS (1)
  1. SINGULAIR [Suspect]
     Indication: ASTHMA
     Route: 048
     Dates: start: 20020101

REACTIONS (3)
  - ASTHMA [None]
  - DRUG INEFFECTIVE [None]
  - SINUS DISORDER [None]
